FAERS Safety Report 12350736 (Version 1)
Quarter: 2016Q2

REPORT INFORMATION
  Report Type: Spontaneous
  Country: US (occurrence: None)
  Receive Date: 20160509
  Receipt Date: 20160509
  Transmission Date: 20160815
  Serious: Yes (Hospitalization, Disabling, Other)
  Sender: FDA-Public Use
  Company Number: None

PATIENT
  Age: 60 Year
  Sex: Male
  Weight: 101.61 kg

DRUGS (11)
  1. LISINOPRIL. [Concomitant]
     Active Substance: LISINOPRIL
  2. ASPIRIN. [Concomitant]
     Active Substance: ASPIRIN
  3. CARVEDILOL. [Concomitant]
     Active Substance: CARVEDILOL
  4. PREDNISONE, 5 MG (WATSON) [Suspect]
     Active Substance: PREDNISONE
     Indication: GOUT
     Dosage: 6 TABLET(S) TAPERING DOSE PACK TAKEN BY MOUTH
     Route: 048
     Dates: start: 20150112, end: 20150117
  5. ALLOPURINOL. [Concomitant]
     Active Substance: ALLOPURINOL
  6. ATAVORSTATIN [Concomitant]
  7. DIGOXIN. [Concomitant]
     Active Substance: DIGOXIN
  8. FUROSEMIDE. [Concomitant]
     Active Substance: FUROSEMIDE
  9. DAILY MULTIPLE VITAMIN [Concomitant]
  10. PRADAXA [Concomitant]
     Active Substance: DABIGATRAN ETEXILATE MESYLATE
  11. CPAP MACHINE [Concomitant]

REACTIONS (10)
  - Hyperhidrosis [None]
  - Eye disorder [None]
  - Dyspnoea [None]
  - Muscle spasms [None]
  - Atrial fibrillation [None]
  - Pain in jaw [None]
  - Joint stiffness [None]
  - Feeling cold [None]
  - Headache [None]
  - Nausea [None]

NARRATIVE: CASE EVENT DATE: 20150114
